FAERS Safety Report 4743092-2 (Version None)
Quarter: 2005Q3

REPORT INFORMATION
  Report Type: 
  Country: None (occurrence: None)
  Receive Date: 20050811
  Receipt Date: 20050309
  Transmission Date: 20060218
  Serious: Yes (Hospitalization)
  Sender: FDA-Public Use
  Company Number: US-MERCK-0503USA01709

PATIENT
  Age: 59 Year
  Sex: Male
  Weight: 109 kg

DRUGS (24)
  1. VIOXX [Suspect]
     Indication: ARTHRITIS
     Route: 048
     Dates: start: 20000101, end: 20040901
  2. VIOXX [Suspect]
     Indication: PAIN
     Route: 048
     Dates: start: 20000101, end: 20040901
  3. DARVOCET-N 100 [Concomitant]
     Route: 065
  4. BUMEX [Concomitant]
     Route: 065
  5. PROVENTIL [Concomitant]
     Indication: ASTHMA
     Route: 055
  6. FLOVENT [Concomitant]
     Indication: ASTHMA
     Route: 055
  7. XANAX [Concomitant]
     Route: 065
  8. VALIUM [Concomitant]
     Route: 065
  9. VALIUM [Concomitant]
     Route: 065
  10. VALIUM [Concomitant]
     Route: 065
     Dates: start: 19960101, end: 20040101
  11. FLUTICASONE PROPIONATE [Concomitant]
     Route: 055
  12. FLOMAX [Concomitant]
     Indication: ASTHMA
     Route: 065
  13. VENTOLIN [Concomitant]
     Route: 065
  14. BECONASE [Concomitant]
     Indication: SINUS DISORDER
     Route: 065
  15. PRINIVIL [Concomitant]
     Route: 048
     Dates: start: 20010101, end: 20030101
  16. VERAPAMIL MSD LP [Concomitant]
     Route: 048
     Dates: start: 19990101, end: 20030914
  17. ASPIRIN [Concomitant]
     Route: 065
     Dates: start: 19990101, end: 20030101
  18. ASPIRIN [Concomitant]
     Route: 065
     Dates: start: 20030101
  19. PREDNISONE [Concomitant]
     Route: 065
     Dates: start: 19910101
  20. TYLENOL (CAPLET) [Concomitant]
     Route: 065
     Dates: start: 20000101
  21. PROPOXYPHENE HYDROCHLORIDE [Concomitant]
     Route: 065
     Dates: start: 20000101
  22. IMDUR [Concomitant]
     Route: 065
     Dates: start: 20030914, end: 20050313
  23. NITROSTAT [Concomitant]
     Route: 065
     Dates: start: 20030901
  24. WARFARIN SODIUM [Concomitant]
     Route: 065
     Dates: start: 20020101, end: 20030515

REACTIONS (22)
  - ANGINA UNSTABLE [None]
  - ANXIETY [None]
  - ASTHMA [None]
  - BENIGN PROSTATIC HYPERPLASIA [None]
  - BLOOD CHOLESTEROL INCREASED [None]
  - CELLULITIS [None]
  - CHEST PAIN [None]
  - CORONARY ARTERY ATHEROSCLEROSIS [None]
  - DEHYDRATION [None]
  - DEPRESSION [None]
  - DIABETES MELLITUS [None]
  - HAEMATURIA [None]
  - HAND FRACTURE [None]
  - HYPERLIPIDAEMIA [None]
  - HYPERTRIGLYCERIDAEMIA [None]
  - LEUKOCYTOSIS [None]
  - LUNG NEOPLASM [None]
  - MYOCARDIAL INFARCTION [None]
  - NON-CARDIAC CHEST PAIN [None]
  - PULMONARY EMBOLISM [None]
  - VENTRICULAR ARRHYTHMIA [None]
  - WOUND [None]
